FAERS Safety Report 12464208 (Version 2)
Quarter: 2016Q4

REPORT INFORMATION
  Report Type: Spontaneous
  Country: US (occurrence: US)
  Receive Date: 20160614
  Receipt Date: 20161010
  Transmission Date: 20170207
  Serious: Yes (Hospitalization, Other)
  Sender: FDA-Public Use
  Company Number: US-GLAXOSMITHKLINE-US2016083182

PATIENT
  Sex: Female

DRUGS (7)
  1. FAMOTIDINE. [Concomitant]
     Active Substance: FAMOTIDINE
  2. LISINOPRIL. [Concomitant]
     Active Substance: LISINOPRIL
  3. CLARITIN [Concomitant]
     Active Substance: LORATADINE
  4. ADVAIR DISKUS [Suspect]
     Active Substance: FLUTICASONE PROPIONATE\SALMETEROL XINAFOATE
     Indication: ASTHMA
     Dosage: 1 PUFF(S), BID
     Dates: start: 1993, end: 201601
  5. ALBUTEROL. [Concomitant]
     Active Substance: ALBUTEROL
  6. NASOCORT [Concomitant]
     Active Substance: BUDESONIDE
  7. SINGULAIR [Concomitant]
     Active Substance: MONTELUKAST SODIUM

REACTIONS (17)
  - Tooth disorder [Not Recovered/Not Resolved]
  - Colitis [Unknown]
  - Tooth loss [Not Recovered/Not Resolved]
  - Osteomyelitis [Unknown]
  - Tooth discolouration [Not Recovered/Not Resolved]
  - Productive cough [Unknown]
  - Choking sensation [Unknown]
  - Osteoporosis [Unknown]
  - Amnesia [Recovered/Resolved]
  - Dental operation [Not Recovered/Not Resolved]
  - Lung infection [Recovered/Resolved]
  - Multiple fractures [Unknown]
  - Cataract operation [Recovered/Resolved]
  - Staphylococcal infection [Unknown]
  - Blood pressure increased [Recovered/Resolved]
  - Gastrooesophageal reflux disease [Not Recovered/Not Resolved]
  - Hypotension [Unknown]

NARRATIVE: CASE EVENT DATE: 2003
